FAERS Safety Report 6613982-4 (Version None)
Quarter: 2010Q1

REPORT INFORMATION
  Report Type: 
  Country: None (occurrence: None)
  Receive Date: 20100304
  Receipt Date: 20100225
  Transmission Date: 20100710
  Serious: Yes (Hospitalization, Disabling, Other)
  Sender: FDA-Public Use
  Company Number: A0846686A

PATIENT
  Age: 57 Year
  Sex: Male

DRUGS (10)
  1. ARZERRA [Suspect]
     Route: 042
     Dates: start: 20100112
  2. DEXAMETHASONE [Concomitant]
  3. BENADRYL [Concomitant]
  4. ACETAMINOPHEN [Concomitant]
  5. ADVAIR DISKUS 100/50 [Concomitant]
  6. FOLIC ACID [Concomitant]
  7. VITAMIN B-12 [Concomitant]
  8. MULTI-VITAMIN [Concomitant]
  9. POTASSIUM [Concomitant]
  10. CITALOPRAM [Concomitant]

REACTIONS (6)
  - BONE PAIN [None]
  - DIZZINESS [None]
  - DYSPNOEA [None]
  - FLUSHING [None]
  - NAUSEA [None]
  - VOMITING [None]
